FAERS Safety Report 13175810 (Version 1)
Quarter: 2017Q1

REPORT INFORMATION
  Report Type: Report from Study
  Country: BE (occurrence: BE)
  Receive Date: 20170201
  Receipt Date: 20170201
  Transmission Date: 20170428
  Serious: Yes (Death, Hospitalization)
  Sender: FDA-Public Use
  Company Number: BE-CELGENEUS-BEL-2016087389

PATIENT
  Age: 76 Year
  Sex: Male
  Weight: 110 kg

DRUGS (34)
  1. REVLIMID [Suspect]
     Active Substance: LENALIDOMIDE
     Dosage: 11.25 MG
     Route: 048
     Dates: start: 20160721
  2. BURINEX [Concomitant]
     Active Substance: BUMETANIDE
     Indication: OEDEMA PERIPHERAL
     Dosage: 1 MG
     Route: 048
     Dates: start: 20160314, end: 20160817
  3. DAFALGAN [Concomitant]
     Active Substance: ACETAMINOPHEN
     Indication: PYREXIA
  4. EMCONCOR [Concomitant]
     Active Substance: BISOPROLOL FUMARATE
     Indication: ATRIAL FIBRILLATION
     Dosage: 5MG
     Route: 048
     Dates: start: 20140610
  5. LYRICA [Concomitant]
     Active Substance: PREGABALIN
     Indication: POLYNEUROPATHY
     Dosage: 75 MG
     Route: 048
     Dates: start: 20120310
  6. ZYLORIC [Concomitant]
     Active Substance: ALLOPURINOL
     Indication: PROPHYLAXIS
     Dosage: 100 MG
     Route: 048
     Dates: start: 20120531, end: 20160818
  7. CALCIUM SANDOZ [Concomitant]
     Active Substance: CALCIUM
     Indication: PROPHYLAXIS
     Dosage: 500 MG
     Route: 048
     Dates: start: 20150116
  8. GLUCOPHAGE [Concomitant]
     Active Substance: METFORMIN HYDROCHLORIDE
     Route: 048
     Dates: start: 20160209
  9. ULTRA K [Concomitant]
     Indication: PROPHYLAXIS
     Dosage: 15 ML
     Route: 048
     Dates: start: 20160204
  10. REVLIMID [Suspect]
     Active Substance: LENALIDOMIDE
     Indication: PLASMA CELL MYELOMA
     Dosage: 18.75 MG
     Route: 048
     Dates: start: 20111229
  11. ALDACTONE [Concomitant]
     Active Substance: SPIRONOLACTONE
     Indication: PROPHYLAXIS
     Dosage: 35 MG
     Route: 048
     Dates: start: 20150710
  12. ASAFLOW [Concomitant]
     Active Substance: ASPIRIN
     Indication: ANTICOAGULANT THERAPY
     Dosage: 80 MG
     Route: 048
     Dates: start: 20090203
  13. GLUCOPHAGE [Concomitant]
     Active Substance: METFORMIN HYDROCHLORIDE
     Indication: DIABETES MELLITUS
     Dosage: 500 MG
     Route: 048
     Dates: start: 20140109, end: 20160818
  14. MAGNESIUM [Concomitant]
     Active Substance: MAGNESIUM
     Indication: MUSCLE SPASMS
     Route: 048
     Dates: start: 20120518
  15. CARFILZOMIB [Suspect]
     Active Substance: CARFILZOMIB
     Indication: PLASMA CELL MYELOMA
     Route: 065
  16. D-CURE [Concomitant]
     Indication: HYPOPHOSPHATAEMIA
  17. FOLAVIT [Concomitant]
     Indication: VITAMIN SUPPLEMENTATION
     Dosage: 4 MG
     Route: 048
     Dates: start: 20070627
  18. RIVOTRIL [Concomitant]
     Active Substance: CLONAZEPAM
     Indication: POLYNEUROPATHY
     Dosage: 0.5 MG
     Route: 048
     Dates: start: 20120531
  19. DEXAMETHASONE. [Suspect]
     Active Substance: DEXAMETHASONE
     Dosage: 20 MG
     Route: 048
     Dates: start: 20160722
  20. DAFALGAN [Concomitant]
     Active Substance: ACETAMINOPHEN
     Indication: PAIN PROPHYLAXIS
     Dosage: 1G
     Route: 048
     Dates: start: 20150821
  21. LIPITOR [Concomitant]
     Active Substance: ATORVASTATIN CALCIUM
     Indication: HYPERCHOLESTEROLAEMIA
     Dosage: 20 MG
     Route: 048
     Dates: start: 200709
  22. MAGNETOP [Concomitant]
     Indication: PROPHYLAXIS
     Dosage: 450 MG
     Route: 048
     Dates: start: 20150822
  23. ASAFLOW [Concomitant]
     Active Substance: ASPIRIN
     Indication: ANTIPLATELET THERAPY
  24. D-CURE [Concomitant]
     Indication: HYPOCALCAEMIA
     Dosage: AMPULE
     Route: 048
     Dates: start: 20160122
  25. DEXAMETHASONE. [Suspect]
     Active Substance: DEXAMETHASONE
     Indication: PLASMA CELL MYELOMA
     Dosage: 40 MG
     Route: 048
     Dates: start: 20111229
  26. ACTOSOLV [Concomitant]
     Indication: DEVICE MALFUNCTION
     Dosage: 4000 OTHER
     Route: 041
     Dates: start: 20150122
  27. MOVICOL [Concomitant]
     Active Substance: POLYETHYLENE GLYCOL 3350\POTASSIUM CHLORIDE\SODIUM BICARBONATE\SODIUM CHLORIDE
     Indication: CONSTIPATION PROPHYLAXIS
     Dosage: 1SACHET
     Route: 048
     Dates: start: 201601
  28. CARFILZOMIB [Suspect]
     Active Substance: CARFILZOMIB
     Route: 065
     Dates: start: 20121227
  29. FOLAVIT [Concomitant]
     Route: 048
     Dates: start: 20160209
  30. IMODIUM [Concomitant]
     Active Substance: LOPERAMIDE HYDROCHLORIDE
     Indication: DIARRHOEA
     Dosage: 2 MG
     Route: 048
     Dates: start: 20120518
  31. IMODIUM [Concomitant]
     Active Substance: LOPERAMIDE HYDROCHLORIDE
     Route: 048
     Dates: start: 20160209
  32. PANTOMED [Concomitant]
     Active Substance: DEXPANTHENOL
     Indication: GASTROOESOPHAGEAL REFLUX DISEASE
     Dosage: 40 MG
     Route: 048
     Dates: start: 20070919
  33. QUESTRAN [Concomitant]
     Active Substance: CHOLESTYRAMINE
     Indication: DIARRHOEA
     Dosage: 1 SATCHET
     Route: 048
     Dates: start: 20150127
  34. TRIBVIT [Concomitant]
     Indication: VITAMIN SUPPLEMENTATION
     Dosage: 1 TABLET
     Route: 048
     Dates: start: 20140206

REACTIONS (2)
  - Acute myeloid leukaemia [Fatal]
  - Bacterial diarrhoea [Recovered/Resolved]

NARRATIVE: CASE EVENT DATE: 20160825
